FAERS Safety Report 7355948-5 (Version None)
Quarter: 2011Q1

REPORT INFORMATION
  Report Type: 
  Country: None (occurrence: None)
  Receive Date: 20110316
  Receipt Date: 20110311
  Transmission Date: 20110831
  Serious: Yes (Death)
  Sender: FDA-Public Use
  Company Number: US-AMGEN-USASP2011014111

PATIENT
  Sex: Male

DRUGS (1)
  1. NPLATE [Suspect]
     Indication: OFF LABEL USE
     Dosage: 0.97 A?G/KG, UNK
     Dates: start: 20100526, end: 20100603

REACTIONS (1)
  - CARDIAC DISORDER [None]
